FAERS Safety Report 9052660 (Version 2)
Quarter: 2013Q1

REPORT INFORMATION
  Report Type: Spontaneous
  Country: HU (occurrence: HU)
  Receive Date: 20130207
  Receipt Date: 20130214
  Transmission Date: 20140127
  Serious: No
  Sender: FDA-Public Use
  Company Number: HU-PFIZER INC-2013043913

PATIENT
  Age: 67 Year
  Sex: Female

DRUGS (2)
  1. ETANERCEPT [Suspect]
     Dosage: 50 MG, WEEKLY
     Route: 058
     Dates: start: 20110221
  2. SULFASALAZINE [Suspect]
     Dosage: UNK

REACTIONS (5)
  - Hepatic enzyme decreased [Unknown]
  - Therapeutic response unexpected [Unknown]
  - Abdominal pain upper [Unknown]
  - Nausea [Unknown]
  - Vomiting [Unknown]
